FAERS Safety Report 9782487 (Version 1)
Quarter: 2013Q4

REPORT INFORMATION
  Report Type: Report from Study
  Country: US (occurrence: US)
  Receive Date: 20131226
  Receipt Date: 20131226
  Transmission Date: 20140711
  Serious: No
  Sender: FDA-Public Use
  Company Number: PHEH2013US025971

PATIENT
  Sex: Female

DRUGS (14)
  1. TASIGNA [Suspect]
     Indication: CHRONIC MYELOID LEUKAEMIA
     Dosage: 300 MG, BID
     Route: 048
     Dates: start: 201306
  2. TASIGNA [Suspect]
     Dosage: 150 MG, BID
     Route: 048
  3. SANDOSTATIN [Concomitant]
  4. OMEPRAZOLE [Concomitant]
  5. LANTUS [Concomitant]
  6. VITAMIIN C [Concomitant]
  7. IRON [Concomitant]
  8. MENEST [Concomitant]
  9. HUMALOG [Concomitant]
  10. GABAPENTIN [Concomitant]
  11. DIOVAN [Concomitant]
  12. LASIX [Concomitant]
  13. PRISTIQ [Concomitant]
  14. DIGOXIN [Concomitant]

REACTIONS (2)
  - Dizziness [Unknown]
  - Vision blurred [Unknown]
